FAERS Safety Report 6248270-1 (Version None)
Quarter: 2009Q2

REPORT INFORMATION
  Report Type: 
  Country: None (occurrence: None)
  Receive Date: 20090629
  Receipt Date: 20090616
  Transmission Date: 20091009
  Serious: Yes (Hospitalization, Other)
  Sender: FDA-Public Use
  Company Number: PHHY2009BR23919

PATIENT
  Sex: Male

DRUGS (8)
  1. FORASEQ [Suspect]
     Indication: ASTHMA
     Dosage: UNK
  2. FORASEQ [Suspect]
     Dosage: TID
  3. FORASEQ [Suspect]
     Dosage: 600MG BD
  4. BEROTEC [Concomitant]
     Indication: WHEEZING
     Dosage: 4 DF, TID
  5. ACETYLCYSTEINE [Concomitant]
     Dosage: 1 DF, QD
     Route: 048
  6. SPIRIVA [Concomitant]
     Indication: LUNG DISORDER
     Dosage: UNK
  7. BAMIFIX [Concomitant]
     Indication: ASTHMA
     Dosage: 1 DF, QD
  8. PREDNISONE TAB [Concomitant]
     Indication: ASTHMA
     Dosage: ONE TABLET EVERY OTHER DAY
     Route: 048

REACTIONS (17)
  - ARRHYTHMIA [None]
  - ASTHMA [None]
  - CARDIAC FIBRILLATION [None]
  - CARDIAC PACEMAKER INSERTION [None]
  - CEREBRAL ISCHAEMIA [None]
  - CONDITION AGGRAVATED [None]
  - CONSTIPATION [None]
  - DIZZINESS [None]
  - FEMUR FRACTURE [None]
  - HYPERTENSION [None]
  - OEDEMA PERIPHERAL [None]
  - PALPITATIONS [None]
  - PNEUMONIA [None]
  - PULMONARY OEDEMA [None]
  - SPEECH DISORDER [None]
  - SYNCOPE [None]
  - THROMBOSIS [None]
